FAERS Safety Report 10066090 (Version 1)
Quarter: 2014Q2

REPORT INFORMATION
  Report Type: Spontaneous
  Country: US (occurrence: US)
  Receive Date: 20140408
  Receipt Date: 20140408
  Transmission Date: 20141212
  Serious: No
  Sender: FDA-Public Use
  Company Number: US-PFIZER INC-2014096007

PATIENT
  Sex: 0

DRUGS (3)
  1. XANAX [Suspect]
     Dosage: UNK
  2. NOVOLOG [Suspect]
     Dosage: UNK
  3. LEVEMIR [Suspect]
     Dosage: UNK

REACTIONS (3)
  - Belligerence [Unknown]
  - Anger [Unknown]
  - Depression [Unknown]
